FAERS Safety Report 9257662 (Version 1)
Quarter: 2013Q1

REPORT INFORMATION
  Report Type: Spontaneous
  Country: US (occurrence: None)
  Receive Date: 20121212
  Receipt Date: 20121212
  Transmission Date: 20140127
  Serious: No
  Sender: FDA-Public Use
  Company Number: 1209USA005361

PATIENT
  Age: 47 Year
  Sex: Male

DRUGS (3)
  1. PEGINTRON(PEGINTERFERON ALFA-2B)POWDER FOR INJECTION [Suspect]
     Indication: HEPATITIS C
     Dates: start: 20111016, end: 20120616
  2. REBETOL(RIBAVIRIN) CAPSULE [Suspect]
     Indication: HEPATITIS C
     Dates: start: 20111017, end: 20120616
  3. VICTRELIS(BOCEPREVIR) CAPSULE [Suspect]
     Indication: HEPATITIS C
     Dates: start: 20111120, end: 20120616

REACTIONS (3)
  - Drug ineffective [None]
  - Muscle spasms [None]
  - Local swelling [None]
